FAERS Safety Report 7481620-7 (Version None)
Quarter: 2011Q2

REPORT INFORMATION
  Report Type: 
  Country: None (occurrence: None)
  Receive Date: 20110516
  Receipt Date: 20110512
  Transmission Date: 20111010
  Serious: Yes (Hospitalization)
  Sender: FDA-Public Use
  Company Number: ES-ROXANE LABORATORIES, INC.-2011-DE-03028GD

PATIENT
  Age: 76 Year
  Sex: Female

DRUGS (3)
  1. ORAMORPH SR [Suspect]
     Indication: PAIN
  2. PREGABALIN [Concomitant]
     Indication: PAIN
  3. FENTANYL [Suspect]
     Indication: PAIN
     Dosage: ROUTE: TRANSMUCOSAL

REACTIONS (3)
  - TOXICITY TO VARIOUS AGENTS [None]
  - ACUTE PRERENAL FAILURE [None]
  - DRUG INEFFECTIVE [None]
